FAERS Safety Report 7153499-4 (Version None)
Quarter: 2010Q4

REPORT INFORMATION
  Report Type: 
  Country: None (occurrence: None)
  Receive Date: 20101213
  Receipt Date: 20101203
  Transmission Date: 20110411
  Serious: Yes (Hospitalization)
  Sender: FDA-Public Use
  Company Number: B0687730A

PATIENT
  Sex: Male

DRUGS (2)
  1. ARIXTRA [Suspect]
     Indication: THROMBOSIS PROPHYLAXIS
     Dosage: 2.5MG UNKNOWN
     Route: 065
  2. LOVENOX [Concomitant]
     Indication: SPINAL OPERATION
     Route: 065

REACTIONS (2)
  - HAEMATOMA INFECTION [None]
  - INCISION SITE HAEMATOMA [None]
